FAERS Safety Report 6649173-0 (Version None)
Quarter: 2010Q1

REPORT INFORMATION
  Report Type: 
  Country: None (occurrence: None)
  Receive Date: 20100324
  Receipt Date: 20100316
  Transmission Date: 20100710
  Serious: Yes (Hospitalization)
  Sender: FDA-Public Use
  Company Number: B0587279A

PATIENT
  Sex: Female
  Weight: 51 kg

DRUGS (7)
  1. TYKERB [Suspect]
     Indication: BREAST CANCER
     Route: 048
     Dates: start: 20090703, end: 20090924
  2. XELODA [Suspect]
     Indication: DRUG USE FOR UNKNOWN INDICATION
     Route: 048
     Dates: start: 20090703, end: 20090917
  3. PYDOXAL [Concomitant]
     Route: 048
     Dates: start: 20090703, end: 20091218
  4. BIFIDOBACTERIUM [Concomitant]
     Route: 048
     Dates: start: 20090703, end: 20091011
  5. DEXALTIN [Concomitant]
     Indication: STOMATITIS
     Route: 061
     Dates: start: 20090724, end: 20091003
  6. ALLOPURINOL [Concomitant]
     Indication: STOMATITIS
     Route: 002
     Dates: start: 20090806, end: 20091003
  7. URSO 250 [Concomitant]
     Indication: JAUNDICE
     Route: 048
     Dates: start: 20091015, end: 20091217

REACTIONS (2)
  - HEPATIC FUNCTION ABNORMAL [None]
  - PARONYCHIA [None]
